FAERS Safety Report 9785084 (Version 2)
Quarter: 2014Q1

REPORT INFORMATION
  Report Type: Spontaneous
  Country: GB (occurrence: GB)
  Receive Date: 20131227
  Receipt Date: 20140102
  Transmission Date: 20141002
  Serious: Yes (Hospitalization)
  Sender: FDA-Public Use
  Company Number: GB-ASTRAZENECA-2013SE92524

PATIENT
  Age: 83 Year
  Sex: 0

DRUGS (11)
  1. OMEPRAZOLE [Suspect]
     Route: 048
  2. OMEPRAZOLE [Suspect]
     Route: 048
  3. CEFUROXIME [Suspect]
     Indication: ANTIBIOTIC PROPHYLAXIS
     Route: 042
     Dates: start: 20111121, end: 20111121
  4. METRONIDAZOLE [Suspect]
     Indication: ANTIBIOTIC PROPHYLAXIS
     Route: 042
     Dates: start: 20111121, end: 20111121
  5. ALENDRONIC ACID [Concomitant]
     Route: 048
  6. ALFACALCIDOL [Concomitant]
     Route: 048
  7. CO-CODAMOL [Concomitant]
     Dosage: AS NECESSARY
     Route: 048
  8. DIPYRIDAMOLE [Concomitant]
     Route: 048
  9. SENNA [Concomitant]
     Route: 048
  10. SIMVASTATIN [Concomitant]
     Route: 048
  11. TAZOCIN [Concomitant]
     Indication: PNEUMONIA
     Route: 042
     Dates: start: 20111003, end: 20111101

REACTIONS (1)
  - Clostridium difficile infection [Recovered/Resolved]
